FAERS Safety Report 10698565 (Version 1)
Quarter: 2015Q1

REPORT INFORMATION
  Report Type: Spontaneous
  Country: US (occurrence: US)
  Receive Date: 20150108
  Receipt Date: 20150108
  Transmission Date: 20150721
  Serious: No
  Sender: FDA-Public Use
  Company Number: US-B.I. PHARMACEUTICALS,INC./RIDGEFIELD-2014-BI-62901BP

PATIENT
  Age: 72 Year
  Sex: Female
  Weight: 68.95 kg

DRUGS (3)
  1. LANTUS [Concomitant]
     Active Substance: INSULIN GLARGINE
     Indication: TYPE 2 DIABETES MELLITUS
     Dosage: FORMULATION:SUBCUTANEOUS, DOSE PER APPLICATION: 15 UNITS; DAILY DOSE: 15 UNITS
     Route: 058
     Dates: start: 201405
  2. SPIRIVA [Suspect]
     Active Substance: TIOTROPIUM BROMIDE MONOHYDRATE
     Indication: PRODUCT USED FOR UNKNOWN INDICATION
     Dosage: 18 MCG
     Route: 055
     Dates: start: 201408
  3. LOVASTATIN. [Concomitant]
     Active Substance: LOVASTATIN
     Indication: BLOOD CHOLESTEROL INCREASED
     Route: 048

REACTIONS (2)
  - Pain [Recovered/Resolved]
  - Foreign body [Recovered/Resolved]

NARRATIVE: CASE EVENT DATE: 201411
